FAERS Safety Report 18361959 (Version 1)
Quarter: 2020Q4

REPORT INFORMATION
  Report Type: Spontaneous
  Country: US (occurrence: US)
  Receive Date: 20201008
  Receipt Date: 20201008
  Transmission Date: 20210114
  Serious: Yes (Hospitalization, Other)
  Sender: FDA-Public Use
  Company Number: US-ELI_LILLY_AND_COMPANY-US202010002189

PATIENT
  Sex: Female

DRUGS (1)
  1. HUMATROPE [Suspect]
     Active Substance: SOMATROPIN
     Indication: HYPOTHALAMO-PITUITARY DISORDER
     Dosage: UNK, UNKNOWN
     Route: 058
     Dates: start: 2013

REACTIONS (10)
  - Pulmonary embolism [Unknown]
  - Cardiomyopathy [Unknown]
  - Drug ineffective [Unknown]
  - Vomiting [Unknown]
  - Hemiplegic migraine [Unknown]
  - Loss of bladder sensation [Unknown]
  - Loss of consciousness [Unknown]
  - Pulmonary oedema [Unknown]
  - Migraine [Recovering/Resolving]
  - Oxygen saturation decreased [Unknown]
